FAERS Safety Report 7305740-2 (Version None)
Quarter: 2011Q1

REPORT INFORMATION
  Report Type: 
  Country: None (occurrence: None)
  Receive Date: 20110222
  Receipt Date: 20110214
  Transmission Date: 20110831
  Serious: Yes (Hospitalization, Congenital Anomaly)
  Sender: FDA-Public Use
  Company Number: A0914714A

PATIENT
  Sex: Male
  Weight: 0.8 kg

DRUGS (2)
  1. PAXIL [Suspect]
     Dosage: 40MG PER DAY
     Route: 064
  2. PRENATAL VITAMINS [Concomitant]

REACTIONS (2)
  - PREMATURE BABY [None]
  - PATENT DUCTUS ARTERIOSUS [None]
